FAERS Safety Report 6662835-4 (Version None)
Quarter: 2010Q2

REPORT INFORMATION
  Report Type: 
  Country: None (occurrence: None)
  Receive Date: 20100401
  Receipt Date: 20100322
  Transmission Date: 20101027
  Serious: No
  Sender: FDA-Public Use
  Company Number: 2009BI004297

PATIENT
  Sex: Female

DRUGS (1)
  1. TYSABRI [Suspect]
     Indication: MULTIPLE SCLEROSIS
     Route: 042
     Dates: start: 20080515

REACTIONS (7)
  - AMNESIA [None]
  - DISORIENTATION [None]
  - FALL [None]
  - FATIGUE [None]
  - ROTATOR CUFF SYNDROME [None]
  - SENSATION OF HEAVINESS [None]
  - STRESS [None]
